FAERS Safety Report 9586174 (Version 1)
Quarter: 2013Q4

REPORT INFORMATION
  Report Type: Spontaneous
  Country: US (occurrence: None)
  Receive Date: 20131002
  Receipt Date: 20131002
  Transmission Date: 20140711
  Serious: Yes (Other)
  Sender: FDA-Public Use
  Company Number: None

PATIENT
  Age: 70 Year
  Sex: Male

DRUGS (1)
  1. HYALURONATE SODIUM [Suspect]
     Indication: OSTEOARTHRITIS
     Route: 014
     Dates: start: 20130930

REACTIONS (1)
  - Blood pressure increased [None]
